FAERS Safety Report 4654816-7 (Version None)
Quarter: 2005Q2

REPORT INFORMATION
  Report Type: 
  Country: None (occurrence: None)
  Receive Date: 20050505
  Receipt Date: 20050420
  Transmission Date: 20051028
  Serious: Yes (Death, Other)
  Sender: FDA-Public Use
  Company Number: 05-04-0736

PATIENT
  Age: 78 Year
  Sex: Male

DRUGS (11)
  1. ALBUTEROL SULFATE [Suspect]
  2. SPIRIVA [Suspect]
     Indication: CHRONIC OBSTRUCTIVE PULMONARY DISEASE
     Dosage: INHALATION
     Route: 055
     Dates: start: 20040201
  3. ACETAMINOPHEN W/ CODEINE [Suspect]
  4. SIMVASTATIN [Concomitant]
  5. FUROSEMIDE [Suspect]
  6. ASPIRIN [Suspect]
  7. NICORANDIL [Suspect]
  8. RABEPRAZOLE SODIUM [Suspect]
  9. SERETIDE [Suspect]
  10. ISOSORBIDE MONONITRATE [Suspect]
  11. BISOPROLOL FUMARATE [Suspect]

REACTIONS (2)
  - LEFT VENTRICULAR FAILURE [None]
  - MYOCARDIAL ISCHAEMIA [None]
